FAERS Safety Report 17762345 (Version 1)
Quarter: 2020Q2

REPORT INFORMATION
  Report Type: Spontaneous
  Country: US (occurrence: US)
  Receive Date: 20200508
  Receipt Date: 20200508
  Transmission Date: 20200714
  Serious: Yes (Other)
  Sender: FDA-Public Use
  Company Number: US-ASTRAZENECA-2020SE60235

PATIENT
  Age: 80 Year
  Sex: Female
  Weight: 67.1 kg

DRUGS (1)
  1. NEXIUM 24HR [Suspect]
     Active Substance: ESOMEPRAZOLE MAGNESIUM
     Indication: GASTROINTESTINAL HAEMORRHAGE
     Dosage: 40 MG, 1X/DAY (20MG TWO CAPSULES ONCE A DAY BY MOUTH)
     Route: 048

REACTIONS (6)
  - Poor quality product administered [Not Recovered/Not Resolved]
  - Hip fracture [Unknown]
  - Product physical issue [Not Recovered/Not Resolved]
  - Pelvic fracture [Unknown]
  - Intentional product use issue [Not Recovered/Not Resolved]
  - Fall [Unknown]
